FAERS Safety Report 5563767-5 (Version None)
Quarter: 2007Q4

REPORT INFORMATION
  Report Type: 
  Country: None (occurrence: None)
  Receive Date: 20071217
  Receipt Date: 20070827
  Transmission Date: 20080405
  Serious: No
  Sender: FDA-Public Use
  Company Number: US-ASTRAZENECA-2007UW20058

PATIENT
  Age: 59 Year
  Sex: Female
  Weight: 72.6 kg

DRUGS (4)
  1. CRESTOR [Suspect]
     Indication: BLOOD CHOLESTEROL
     Route: 048
     Dates: start: 20070709, end: 20070716
  2. CRESTOR [Suspect]
     Route: 048
     Dates: start: 20070809
  3. METFORMIN HCL [Concomitant]
  4. BONIVA [Concomitant]

REACTIONS (3)
  - DEPRESSED MOOD [None]
  - DISCOMFORT [None]
  - LIMB DISCOMFORT [None]
